FAERS Safety Report 10709207 (Version 1)
Quarter: 2015Q1

REPORT INFORMATION
  Report Type: Spontaneous
  Country: JP (occurrence: JP)
  Receive Date: 20150114
  Receipt Date: 20150114
  Transmission Date: 20150721
  Serious: Yes (Other)
  Sender: FDA-Public Use
  Company Number: JP-AMGEN-JPNSP2014095415

PATIENT
  Age: 15 Year
  Sex: Male
  Weight: 45 kg

DRUGS (17)
  1. HALIZON [Concomitant]
     Indication: ACUTE LYMPHOCYTIC LEUKAEMIA
     Dosage: 3 ML, BID
     Route: 048
     Dates: start: 20140708
  2. FEBURIC [Concomitant]
     Active Substance: FEBUXOSTAT
     Indication: HYPERURICAEMIA
     Dosage: 10 MG, QD
     Route: 048
     Dates: start: 20141017, end: 20141120
  3. CELLCEPT [Concomitant]
     Active Substance: MYCOPHENOLATE MOFETIL\MYCOPHENOLATE MOFETIL HYDROCHLORIDE
     Indication: ALLOGENIC BONE MARROW TRANSPLANTATION THERAPY
     Dosage: 375 MG, BID
     Route: 048
     Dates: start: 20141112
  4. VALTREX [Concomitant]
     Active Substance: VALACYCLOVIR HYDROCHLORIDE
     Indication: ACUTE LYMPHOCYTIC LEUKAEMIA
     Dosage: 500 MG, TID
     Route: 048
     Dates: start: 20140516
  5. ASPARA-CA [Concomitant]
     Active Substance: CALCIUM ASPARTATE
     Dosage: 1200 MG, QD
     Route: 065
  6. PRALIA [Suspect]
     Active Substance: DENOSUMAB
     Indication: OSTEOPOROSIS
     Dosage: 60 MG, ONCE
     Route: 065
     Dates: start: 20141106
  7. BIOFERMIN R [Concomitant]
     Active Substance: BACILLUS SUBTILIS\LACTOBACILLUS ACIDOPHILUS\STREPTOCOCCUS FAECAIS
     Indication: ACUTE LYMPHOCYTIC LEUKAEMIA
     Dosage: 1 DF, BID
     Route: 048
     Dates: start: 20140221
  8. BAKTAR [Concomitant]
     Active Substance: SULFAMETHOXAZOLE\TRIMETHOPRIM
     Indication: ACUTE LYMPHOCYTIC LEUKAEMIA
     Dosage: 1 G, QD
     Route: 048
     Dates: start: 20140221
  9. ROCALTROL [Concomitant]
     Active Substance: CALCITRIOL
     Indication: OSTEOPOROSIS
     Dosage: 0.5 MUG, QD
     Route: 048
     Dates: start: 20141002
  10. URSO [Concomitant]
     Active Substance: URSODIOL
     Indication: ACUTE LYMPHOCYTIC LEUKAEMIA
     Dosage: 50 MG, TID
     Route: 048
     Dates: start: 20140225, end: 20141120
  11. GLYCYRON                           /00466401/ [Concomitant]
     Indication: ACUTE LYMPHOCYTIC LEUKAEMIA
     Dosage: 1 DF, TID
     Route: 048
     Dates: start: 20140919, end: 20141120
  12. ROCALTROL CHUGAI [Concomitant]
     Dosage: UNK UNK, QD
     Route: 065
  13. LANSOPRAZOLE. [Concomitant]
     Active Substance: LANSOPRAZOLE
     Indication: ACUTE LYMPHOCYTIC LEUKAEMIA
     Dosage: 30 MG, QD
     Route: 048
     Dates: start: 20140813
  14. MONTELUKAST [Concomitant]
     Active Substance: MONTELUKAST SODIUM
     Indication: ALLERGIC BRONCHITIS
     Dosage: 10 MG, QD
     Route: 048
     Dates: start: 20141023
  15. PROGRAF [Concomitant]
     Active Substance: TACROLIMUS\TACROLIMUS ANHYDROUS
     Indication: ALLOGENIC BONE MARROW TRANSPLANTATION THERAPY
     Dosage: 6 DF, BID
     Route: 048
     Dates: start: 20141110
  16. MEDROL [Concomitant]
     Active Substance: METHYLPREDNISOLONE
     Indication: ALLOGENIC BONE MARROW TRANSPLANTATION THERAPY
     Dosage: 28 MG, QD (TID)
     Route: 048
     Dates: start: 20141112, end: 20141118
  17. VALIXA [Concomitant]
     Active Substance: VALGANCICLOVIR
     Indication: ALLOGENIC BONE MARROW TRANSPLANTATION THERAPY
     Dosage: 900 MG, QD
     Route: 048
     Dates: start: 20141112, end: 20141118

REACTIONS (2)
  - Sepsis [Recovering/Resolving]
  - Hypocalcaemia [Recovering/Resolving]

NARRATIVE: CASE EVENT DATE: 20141110
